FAERS Safety Report 9300045 (Version 1)
Quarter: 2012Q4

REPORT INFORMATION
  Report Type: Spontaneous
  Country: CA (occurrence: None)
  Receive Date: 20121106
  Receipt Date: 20121106
  Transmission Date: 20130627
  Serious: Yes (Hospitalization)
  Sender: FDA-Public Use
  Company Number: ACO_32690_2012

PATIENT
  Age: 26 Year
  Sex: Female

DRUGS (2)
  1. FAMPYRA (DALFAMPRIDINE) TABLET, 10MG [Suspect]
     Indication: MOBILITY DECREASED
     Dates: start: 20120928, end: 20121018
  2. TYSABRI (NATALIZUMAB) [Concomitant]

REACTIONS (1)
  - Convulsion [None]
